FAERS Safety Report 12834993 (Version 3)
Quarter: 2016Q4

REPORT INFORMATION
  Report Type: Spontaneous
  Country: FR (occurrence: FR)
  Receive Date: 20161010
  Receipt Date: 20161027
  Transmission Date: 20170207
  Serious: Yes (Death, Other)
  Sender: FDA-Public Use
  Company Number: FR-GILEAD-2016-0237021

PATIENT
  Age: 48 Year
  Sex: Male
  Weight: 76 kg

DRUGS (1)
  1. LEDIPASVIR/SOFOSBUVIR [Suspect]
     Active Substance: LEDIPASVIR\SOFOSBUVIR
     Indication: CHRONIC HEPATITIS C
     Dosage: UNK
     Route: 048
     Dates: start: 20160708

REACTIONS (2)
  - Cardiac arrest [Fatal]
  - Sudden death [Fatal]

NARRATIVE: CASE EVENT DATE: 20160923
